FAERS Safety Report 5438464-7 (Version None)
Quarter: 2007Q3

REPORT INFORMATION
  Report Type: 
  Country: None (occurrence: None)
  Receive Date: 20070831
  Receipt Date: 20070823
  Transmission Date: 20080115
  Serious: Yes (Other)
  Sender: FDA-Public Use
  Company Number: US-ELI_LILLY_AND_COMPANY-US200707006999

PATIENT
  Age: 82 Year
  Sex: Male
  Weight: 78.004 kg

DRUGS (6)
  1. HUMATROPE [Suspect]
     Indication: HYPOPITUITARISM
     Dosage: 0.15 ML, UNKNOWN
     Dates: start: 20010501, end: 20070601
  2. HUMATROPE [Suspect]
     Dosage: 0.15 ML, UNKNOWN
     Dates: start: 20070801
  3. HYDROCORTISONE [Concomitant]
     Indication: HYPOPITUITARISM
     Dosage: 20 MG, DAILY (1/D)
     Dates: start: 19790501
  4. DELATESTRYL [Concomitant]
     Indication: HYPOPITUITARISM
     Dosage: 100 MG, OTHER
     Route: 030
     Dates: start: 19790501
  5. DESMOPRESSIN ACETATE [Concomitant]
     Indication: HYPOPITUITARISM
     Dosage: 1 D/F, DAILY (1/D)
     Route: 045
     Dates: start: 19790501
  6. SYNTHROID [Concomitant]
     Indication: HYPOPITUITARISM
     Dosage: 0.125 MG, DAILY (1/D)
     Dates: start: 19790501

REACTIONS (1)
  - MALIGNANT MELANOMA [None]
